FAERS Safety Report 15338049 (Version 1)
Quarter: 2018Q3

REPORT INFORMATION
  Report Type: Report from Study
  Country: None (occurrence: US)
  Receive Date: 20180831
  Receipt Date: 20180831
  Transmission Date: 20181010
  Serious: Yes (Hospitalization)
  Sender: FDA-Public Use
  Company Number: US-ABBVIE-18K-163-2469890-00

PATIENT
  Age: 53 Year
  Sex: Female

DRUGS (1)
  1. HUMIRA [Suspect]
     Active Substance: ADALIMUMAB
     Indication: PRODUCT USED FOR UNKNOWN INDICATION
     Route: 058
     Dates: end: 201808

REACTIONS (4)
  - Drug hypersensitivity [Unknown]
  - Lymphadenopathy [Unknown]
  - Urticaria [Unknown]
  - Orbital oedema [Unknown]

NARRATIVE: CASE EVENT DATE: 20180819
